FAERS Safety Report 8001525-2 (Version None)
Quarter: 2011Q4

REPORT INFORMATION
  Report Type: 
  Country: None (occurrence: None)
  Receive Date: 20111222
  Receipt Date: 20111216
  Transmission Date: 20120403
  Serious: Yes (Other)
  Sender: FDA-Public Use
  Company Number: CH-PFIZER INC-2011290215

PATIENT
  Age: 69 Year
  Sex: Female
  Weight: 75 kg

DRUGS (5)
  1. TOVIAZ [Suspect]
     Indication: HYPERTONIC BLADDER
     Dosage: 4 MG, 1X/DAY
     Route: 048
     Dates: start: 20100101
  2. SYSTEN [Concomitant]
     Dosage: 50 UNK, 2X/WEEK
     Dates: start: 20050101
  3. LEVOTHYROXINE SODIUM [Concomitant]
     Dosage: 25 UNK, 1X/DAY
     Route: 048
     Dates: start: 20060101
  4. TOVIAZ [Suspect]
     Dosage: 4 MG, 1X/DAY
     Route: 048
     Dates: start: 20091204, end: 20091211
  5. METOPROLOL SUCCINATE [Concomitant]
     Indication: HYPERTENSION
     Dosage: 50 MG, 1X/DAY
     Route: 048
     Dates: start: 20110101

REACTIONS (5)
  - THYROID DISORDER [None]
  - ANGINA PECTORIS [None]
  - PALPITATIONS [None]
  - BRADYCARDIA [None]
  - HYPERTENSION [None]
